FAERS Safety Report 16211491 (Version 1)
Quarter: 2019Q2

REPORT INFORMATION
  Report Type: Spontaneous
  Country: US (occurrence: US)
  Receive Date: 20190418
  Receipt Date: 20190418
  Transmission Date: 20190711
  Serious: No
  Sender: FDA-Public Use
  Company Number: US-GLAXOSMITHKLINE-US2019069855

PATIENT
  Age: 62 Year
  Sex: Female

DRUGS (2)
  1. EXCEDRIN PM TRIPLE ACTION CAPLETS [Suspect]
     Active Substance: ACETAMINOPHEN\ASPIRIN\DIPHENHYDRAMINE CITRATE
     Indication: PRODUCT USED FOR UNKNOWN INDICATION
     Dosage: UNK
  2. EXCEDRIN MIGRAINE [Suspect]
     Active Substance: ACETAMINOPHEN\ASPIRIN\CAFFEINE
     Indication: PRODUCT USED FOR UNKNOWN INDICATION
     Dosage: UNK

REACTIONS (4)
  - Drug ineffective [Unknown]
  - Insomnia [Unknown]
  - Tremor [Unknown]
  - Expired product administered [Unknown]
